FAERS Safety Report 5349622-4 (Version None)
Quarter: 2007Q2

REPORT INFORMATION
  Report Type: 
  Country: None (occurrence: None)
  Receive Date: 20070607
  Receipt Date: 20070222
  Transmission Date: 20071010
  Serious: Yes (Other)
  Sender: FDA-Public Use
  Company Number: CA-JNJFOC-20070503410

PATIENT
  Sex: Male

DRUGS (2)
  1. TRAMAL HCL [Suspect]
     Indication: DRUG USE FOR UNKNOWN INDICATION
     Route: 065
  2. GEMZAR [Suspect]
     Indication: NEOPLASM MALIGNANT
     Route: 065

REACTIONS (5)
  - ANOREXIA [None]
  - HAEMOPTYSIS [None]
  - LETHARGY [None]
  - WEIGHT DECREASED [None]
  - WHITE BLOOD CELL COUNT DECREASED [None]
